FAERS Safety Report 14753119 (Version 1)
Quarter: 2018Q2

REPORT INFORMATION
  Report Type: Spontaneous
  Country: MX (occurrence: MX)
  Receive Date: 20180412
  Receipt Date: 20180412
  Transmission Date: 20180711
  Serious: Yes (Other)
  Sender: FDA-Public Use
  Company Number: MX-SA-2018SA104362

PATIENT
  Age: 83 Year
  Sex: Female
  Weight: 65 kg

DRUGS (2)
  1. LANTUS SOLOSTAR [Suspect]
     Active Substance: INSULIN GLARGINE
     Indication: DIABETES MELLITUS
     Route: 058
     Dates: start: 2010, end: 20180331
  2. SOLOSTAR [Suspect]
     Active Substance: DEVICE
     Dates: start: 2010, end: 20180331

REACTIONS (4)
  - Osteoporosis [Not Recovered/Not Resolved]
  - Hyperglycaemia [Recovered/Resolved]
  - Spinal fracture [Recovered/Resolved]
  - Hypertension [Not Recovered/Not Resolved]

NARRATIVE: CASE EVENT DATE: 2010
